FAERS Safety Report 9813157 (Version 2)
Quarter: 2014Q1

REPORT INFORMATION
  Report Type: Report from Study
  Country: GB (occurrence: GB)
  Receive Date: 20140113
  Receipt Date: 20140203
  Transmission Date: 20141002
  Serious: Yes (Hospitalization)
  Sender: FDA-Public Use
  Company Number: GB-JNJFOC-20140102378

PATIENT
  Age: 32 Year
  Sex: Female
  Weight: 63.7 kg

DRUGS (13)
  1. USTEKINUMAB [Suspect]
     Indication: PSORIASIS
     Route: 058
     Dates: start: 20131025
  2. USTEKINUMAB [Suspect]
     Indication: PSORIASIS
     Route: 058
     Dates: start: 20130529
  3. USTEKINUMAB [Suspect]
     Indication: PSORIASIS
     Route: 058
     Dates: start: 20130619
  4. USTEKINUMAB [Suspect]
     Indication: PSORIASIS
     Route: 058
     Dates: start: 20130821
  5. SOLPADOL [Concomitant]
     Route: 065
     Dates: start: 20120627
  6. GABAPENTIN [Concomitant]
     Route: 065
     Dates: start: 20120917
  7. LANSOPRAZOLE [Concomitant]
     Route: 065
     Dates: start: 20131028
  8. MIGRALAVE [Concomitant]
     Route: 065
     Dates: start: 20131028
  9. TRAMADOL [Concomitant]
     Route: 065
     Dates: start: 20131028
  10. NEFOPAM [Concomitant]
     Route: 065
     Dates: start: 20131028
  11. DOXEPIN [Concomitant]
     Route: 065
     Dates: start: 20131028
  12. HYDROXYZINE [Concomitant]
     Route: 065
     Dates: start: 20131028
  13. FEXOFENADINE [Concomitant]
     Route: 065
     Dates: start: 20131028

REACTIONS (2)
  - Psoriasis [Recovered/Resolved]
  - Infected skin ulcer [Recovered/Resolved]
